FAERS Safety Report 4879443-8 (Version None)
Quarter: 2005Q4

REPORT INFORMATION
  Report Type: 
  Country: None (occurrence: None)
  Receive Date: 20051209
  Receipt Date: 20050901
  Transmission Date: 20060501
  Serious: Yes (Other)
  Sender: FDA-Public Use
  Company Number: USA-2002-0000686

PATIENT
  Sex: Female
  Weight: 88 kg

DRUGS (13)
  1. OXYCONTIN [Suspect]
     Indication: PAIN
     Dosage: BID, ORAL
     Route: 048
     Dates: start: 19990101, end: 20020101
  2. HEROIN                (DIAMORPHINE) [Suspect]
     Dosage: INT
     Route: 042
  3. MARIJUANA (CANNABIS) [Suspect]
  4. COCAINE (COCAINE) [Suspect]
  5. VIOXX [Concomitant]
  6. ESTRATEST [Concomitant]
  7. VALIUM [Concomitant]
  8. LASIX [Concomitant]
  9. POTASSIUM [Concomitant]
  10. ALLOPURINOL [Concomitant]
  11. HYDROXYCHLOROQUINE SULFATE [Concomitant]
  12. PREVACID [Concomitant]
  13. LORTAB [Concomitant]

REACTIONS (17)
  - ARTHRALGIA [None]
  - CHONDROMALACIA [None]
  - CONDITION AGGRAVATED [None]
  - DRUG DEPENDENCE [None]
  - DRUG WITHDRAWAL SYNDROME [None]
  - FACET JOINT SYNDROME [None]
  - HYPERURICAEMIA [None]
  - INADEQUATE ANALGESIA [None]
  - MUSCLE SPASMS [None]
  - MUSCULOSKELETAL STIFFNESS [None]
  - OSTEOARTHRITIS [None]
  - PAIN [None]
  - POLYARTHRITIS [None]
  - POLYSUBSTANCE ABUSE [None]
  - RHEUMATOID ARTHRITIS [None]
  - RHEUMATOID FACTOR POSITIVE [None]
  - TENDERNESS [None]
